FAERS Safety Report 7325279-8 (Version None)
Quarter: 2011Q1

REPORT INFORMATION
  Report Type: 
  Country: None (occurrence: None)
  Receive Date: 20110302
  Receipt Date: 20110218
  Transmission Date: 20110831
  Serious: Yes (Death)
  Sender: FDA-Public Use
  Company Number: CZ-US-EMD SERONO, INC.-7042698

PATIENT
  Sex: Female

DRUGS (2)
  1. PUREGON PEN [Suspect]
     Indication: INFERTILITY
     Dosage: PRODUCT ADMINISTRATED TO MOTHER IN FRAME OF IVF
     Route: 064
  2. OVITRELLE [Suspect]
     Indication: INFERTILITY
     Dosage: PRODUCT ADMINISTRATED TO MOTHER IN FRAME OF IVF
     Route: 064

REACTIONS (8)
  - PREMATURE BABY [None]
  - POLYHYDRAMNIOS [None]
  - KARYOTYPE ANALYSIS ABNORMAL [None]
  - HEART DISEASE CONGENITAL [None]
  - FOETAL GROWTH RESTRICTION [None]
  - STILLBIRTH [None]
  - CONGENITAL RENAL DISORDER [None]
  - PLACENTAL TRANSFUSION SYNDROME [None]
